FAERS Safety Report 8426415-2 (Version None)
Quarter: 2012Q2

REPORT INFORMATION
  Report Type: 
  Country: None (occurrence: None)
  Receive Date: 20120524
  Receipt Date: 20120508
  Transmission Date: 20120825
  Serious: Yes (Other)
  Sender: FDA-Public Use
  Company Number: 2012032339

PATIENT

DRUGS (4)
  1. PRIVIGEN [Suspect]
     Dosage: 5 G TOTAL, 1/4 FRACTION, 10 G TOTAL, 1/4 FRACTION, 20 G TOTAL, 1/4 FRACTION
     Route: 042
     Dates: start: 20120318, end: 20120318
  2. PRIVIGEN [Suspect]
     Dosage: 5 G TOTAL, 1/4 FRACTION, 10 G TOTAL, 1/4 FRACTION, 20 G TOTAL, 1/4 FRACTION
     Route: 042
     Dates: start: 20120318, end: 20120318
  3. PRIVIGEN [Suspect]
  4. PRIVIGEN [Suspect]

REACTIONS (3)
  - SEPTIC SHOCK [None]
  - STREPTOCOCCAL SEPSIS [None]
  - PYREXIA [None]
